FAERS Safety Report 26172798 (Version 1)
Quarter: 2025Q4

REPORT INFORMATION
  Report Type: Report from Study
  Country: IL (occurrence: IL)
  Receive Date: 20251218
  Receipt Date: 20251218
  Transmission Date: 20260118
  Serious: Yes (Other)
  Sender: ABBVIE
  Company Number: IL-ABBVIE-6591809

PATIENT
  Sex: Male

DRUGS (2)
  1. CARBIDOPA\LEVODOPA [Suspect]
     Active Substance: CARBIDOPA\LEVODOPA
     Indication: Parkinson^s disease
     Route: 050
     Dates: start: 20220529
  2. CARBIDOPA\LEVODOPA [Suspect]
     Active Substance: CARBIDOPA\LEVODOPA
     Dosage: MORNING DOSE:8.0ML ADDITIONAL TUBE FILING(ML): 3.0 CONTINUOUS DOSAGE (ML/H): 4.0 EXTRA DOSAGE: 1....
     Route: 050
     Dates: start: 20251014, end: 20251014

REACTIONS (4)
  - Haematochezia [Unknown]
  - Constipation [Unknown]
  - Device dislocation [Recovered/Resolved]
  - Dyschezia [Unknown]
